FAERS Safety Report 9291041 (Version 2)
Quarter: 2013Q2

REPORT INFORMATION
  Report Type: Spontaneous
  Country: DK (occurrence: CH)
  Receive Date: 20130515
  Receipt Date: 20130626
  Transmission Date: 20140414
  Serious: Yes (Other)
  Sender: FDA-Public Use
  Company Number: CH-FRI-1000045147

PATIENT
  Sex: Male
  Weight: 59 kg

DRUGS (2)
  1. ESCITALOPRAM [Suspect]
     Indication: DEPRESSION
     Dosage: 10 MG
     Route: 048
  2. ESCITALOPRAM [Suspect]
     Indication: ANXIETY

REACTIONS (1)
  - Neutropenia [Unknown]
